FAERS Safety Report 6901969-3 (Version None)
Quarter: 2010Q3

REPORT INFORMATION
  Report Type: 
  Country: None (occurrence: None)
  Receive Date: 20100803
  Receipt Date: 20080407
  Transmission Date: 20110219
  Serious: No
  Sender: FDA-Public Use
  Company Number: US-PFIZER INC-2008030308

PATIENT
  Sex: Female
  Weight: 72.6 kg

DRUGS (6)
  1. LYRICA [Suspect]
     Indication: FIBROMYALGIA
     Dates: start: 20080403
  2. VIBRAMYCIN [Interacting]
     Indication: ACNE
     Dates: start: 20080308
  3. CLOBETASOL PROPIONATE [Concomitant]
     Indication: ALOPECIA
  4. ALBUTEROL [Concomitant]
     Route: 055
  5. TRIAMCINOLONE [Concomitant]
     Route: 061
  6. TRETINOIN [Concomitant]
     Route: 061

REACTIONS (2)
  - DRUG INTERACTION [None]
  - DRUG SCREEN POSITIVE [None]
